FAERS Safety Report 10747362 (Version 1)
Quarter: 2015Q1

REPORT INFORMATION
  Report Type: Spontaneous
  Country: US (occurrence: None)
  Receive Date: 20150114
  Receipt Date: 20150114
  Transmission Date: 20150721
  Serious: Yes (Hospitalization)
  Sender: FDA-Public Use
  Company Number: PR427865

PATIENT
  Age: 63 Year
  Sex: Male
  Weight: 97.52 kg

DRUGS (1)
  1. VALPROIC ACID. [Suspect]
     Active Substance: VALPROIC ACID
     Indication: SEIZURE
     Dosage: 2 / 2X PER DAY BY MOUTH
     Route: 048

REACTIONS (6)
  - Dizziness [None]
  - Nausea [None]
  - Tunnel vision [None]
  - Type 2 diabetes mellitus [None]
  - Glycosylated haemoglobin increased [None]
  - Dysarthria [None]

NARRATIVE: CASE EVENT DATE: 2013
